FAERS Safety Report 19379905 (Version 1)
Quarter: 2021Q2

REPORT INFORMATION
  Report Type: Report from Study
  Country: GB (occurrence: GB)
  Receive Date: 20210607
  Receipt Date: 20210607
  Transmission Date: 20210717
  Serious: Yes (Death, Other)
  Sender: FDA-Public Use
  Company Number: NVSC2021GB125406

PATIENT

DRUGS (1)
  1. AFINITOR [Suspect]
     Active Substance: EVEROLIMUS
     Indication: MEDULLOBLASTOMA RECURRENT
     Dosage: UNK
     Route: 048
     Dates: end: 202012

REACTIONS (3)
  - Death [Fatal]
  - Medulloblastoma [Unknown]
  - Malignant neoplasm progression [Unknown]
